FAERS Safety Report 7553403-0 (Version None)
Quarter: 2011Q2

REPORT INFORMATION
  Report Type: 
  Country: None (occurrence: None)
  Receive Date: 20110614
  Receipt Date: 20110614
  Transmission Date: 20111010
  Serious: Yes (Hospitalization)
  Sender: FDA-Public Use
  Company Number: None

PATIENT
  Age: 52 Year
  Sex: Female

DRUGS (18)
  1. ASENAPINE [Suspect]
  2. PRIMAL DEFENSE ULTRA PROBIOTIC FORMULA [Concomitant]
  3. SUPER C YOUNG LIVING [Concomitant]
  4. CITALOPRAM HYDROBROMIDE [Concomitant]
  5. METHIMAZOLE [Suspect]
  6. MELOXICAM [Concomitant]
  7. METOPROLOL TARTRATE [Concomitant]
  8. BLACK COHASH EXTRACT [Concomitant]
  9. OMEPRAZOLE [Concomitant]
  10. ALPRAZOLAM [Concomitant]
  11. ASPIRIN [Concomitant]
  12. VITAMIN D [Concomitant]
  13. CALCIUM CITRATE [Concomitant]
  14. PREDNISONE [Concomitant]
  15. MORPHINE [Concomitant]
  16. NIKKEN KENZEN MEGA DAILY FOR WOMEN [Concomitant]
  17. CYCLOBENZAPRINE [Concomitant]
  18. LOVAZA [Concomitant]

REACTIONS (4)
  - STEVENS-JOHNSON SYNDROME [None]
  - MENTAL STATUS CHANGES [None]
  - RENAL FAILURE ACUTE [None]
  - HEPATIC FAILURE [None]
